FAERS Safety Report 24840390 (Version 1)
Quarter: 2025Q1

REPORT INFORMATION
  Report Type: Spontaneous
  Country: US (occurrence: None)
  Receive Date: 20250113
  Receipt Date: 20250113
  Transmission Date: 20250409
  Serious: No
  Sender: FDA-CTU
  Company Number: None

PATIENT
  Age: 69 Year
  Sex: Female
  Weight: 108 kg

DRUGS (13)
  1. NUCALA [Suspect]
     Active Substance: MEPOLIZUMAB
     Indication: Chronic obstructive pulmonary disease
     Dosage: OTHER QUANTITY : 1 INJECTION(S);?FREQUENCY : MONTHLY;?OTHER ROUTE : INJECTED INTO SIDE OF QUAD;?
     Route: 050
     Dates: start: 20240223, end: 20240223
  2. DUPILUMAB [Suspect]
     Active Substance: DUPILUMAB
  3. METOPROLOL [Concomitant]
     Active Substance: METOPROLOL
  4. Breztri Inh [Concomitant]
  5. TOPAMAX [Concomitant]
     Active Substance: TOPIRAMATE
  6. DESLORATADINE [Concomitant]
     Active Substance: DESLORATADINE
  7. montelukust [Concomitant]
  8. BACLOFEN [Concomitant]
     Active Substance: BACLOFEN
  9. FASENRA [Concomitant]
     Active Substance: BENRALIZUMAB
  10. BUPROPION [Concomitant]
     Active Substance: BUPROPION
  11. TRAZODONE [Concomitant]
     Active Substance: TRAZODONE HYDROCHLORIDE
  12. ROFLUMILAST [Concomitant]
     Active Substance: ROFLUMILAST
  13. OXYBUTYNIN [Concomitant]
     Active Substance: OXYBUTYNIN

REACTIONS (1)
  - Injection site rash [None]

NARRATIVE: CASE EVENT DATE: 20240223
